FAERS Safety Report 15838693 (Version 1)
Quarter: 2019Q1

REPORT INFORMATION
  Report Type: Spontaneous
  Country: US (occurrence: US)
  Receive Date: 20190117
  Receipt Date: 20190117
  Transmission Date: 20190417
  Serious: Yes (Other)
  Sender: FDA-Public Use
  Company Number: US-PFIZER INC-2019019629

PATIENT
  Age: 36 Year
  Sex: Female
  Weight: 110.6 kg

DRUGS (1)
  1. FENTANYL CITRATE. [Suspect]
     Active Substance: FENTANYL CITRATE
     Dosage: UNK

REACTIONS (4)
  - Pruritus [Unknown]
  - Visual impairment [Unknown]
  - Drug dependence [Unknown]
  - Erythema [Unknown]
